FAERS Safety Report 16159426 (Version 6)
Quarter: 2022Q2

REPORT INFORMATION
  Report Type: Spontaneous
  Country: US (occurrence: US)
  Receive Date: 20190404
  Receipt Date: 20220415
  Transmission Date: 20220721
  Serious: No
  Sender: FDA-Public Use
  Company Number: US-PFIZER INC-2018486901

PATIENT
  Age: 11 Year
  Sex: Female

DRUGS (2)
  1. GENOTROPIN [Suspect]
     Active Substance: SOMATROPIN
     Indication: Growth hormone deficiency
     Dosage: 1.8 MG, DAILY
     Dates: start: 20190318
  2. GENOTROPIN [Suspect]
     Active Substance: SOMATROPIN
     Dosage: 2.1 MG, DAILY
     Dates: start: 20190318

REACTIONS (4)
  - Off label use [Unknown]
  - Product prescribing error [Unknown]
  - Drug dose omission by device [Unknown]
  - Device issue [Unknown]
